FAERS Safety Report 9478522 (Version 1)
Quarter: 2013Q3

REPORT INFORMATION
  Report Type: Report from Study
  Country: AU (occurrence: AU)
  Receive Date: 20130827
  Receipt Date: 20130827
  Transmission Date: 20140515
  Serious: Yes (Life-Threatening, Hospitalization)
  Sender: FDA-Public Use
  Company Number: AU-SANOFI-AVENTIS-2013SA082506

PATIENT
  Age: 54 Year
  Sex: Male
  Weight: 100 kg

DRUGS (26)
  1. CABAZITAXEL [Suspect]
     Indication: PROSTATE CANCER METASTATIC
     Route: 042
     Dates: start: 20130726
  2. ANTINEOPLASTIC AGENTS [Suspect]
     Indication: PROSTATE CANCER METASTATIC
     Route: 042
     Dates: start: 20130719
  3. ATIVAN [Concomitant]
     Indication: ANXIETY
     Dates: start: 20130603
  4. DOCUSATE SODIUM\SENNOSIDES [Concomitant]
     Indication: CONSTIPATION
     Dates: start: 201210
  5. DOCUSATE SODIUM\SENNOSIDES [Concomitant]
     Indication: CONSTIPATION PROPHYLAXIS
     Dates: start: 201210
  6. ACTILAX [Concomitant]
     Indication: CONSTIPATION
     Dates: start: 201210
  7. ACTILAX [Concomitant]
     Indication: CONSTIPATION PROPHYLAXIS
     Dates: start: 201210
  8. ALOXI [Concomitant]
     Indication: PREMEDICATION
     Dosage: DOSE: 11.9048
     Route: 042
     Dates: start: 20130726
  9. VITAMIN D [Concomitant]
     Indication: VITAMIN D DECREASED
     Dates: start: 201301
  10. CALCIUM [Concomitant]
     Indication: BONE DENSITY ABNORMAL
     Dates: start: 201306
  11. DENOSUMAB [Concomitant]
     Indication: METASTASES TO BONE
     Dates: start: 201210
  12. PARACETAMOL [Concomitant]
     Indication: ANALGESIC THERAPY
     Route: 048
     Dates: start: 201210
  13. METOCLOPRAMIDE [Concomitant]
     Indication: NAUSEA
     Route: 048
     Dates: start: 201210
  14. PANADOL OSTEO [Concomitant]
     Indication: ANALGESIC THERAPY
     Route: 048
     Dates: start: 201303
  15. SOTALOL [Concomitant]
     Indication: ATRIAL FIBRILLATION
     Dates: start: 2005
  16. PREDNISOLONE [Concomitant]
     Indication: PROSTATE CANCER
     Dates: start: 201210
  17. PANTOPRAZOLE [Concomitant]
     Indication: DYSPEPSIA
     Dates: start: 201210
  18. WARFARIN [Concomitant]
     Route: 048
     Dates: start: 200912
  19. ZOLADEX IMPLANT [Concomitant]
     Indication: PROSTATE CANCER
  20. ZYLOPRIM [Concomitant]
     Indication: GOUT
     Dates: start: 200810
  21. ENDONE [Concomitant]
     Indication: ANALGESIC THERAPY
     Route: 048
  22. OXYCONTIN [Concomitant]
     Indication: ANALGESIC THERAPY
     Route: 048
     Dates: start: 201210, end: 20130725
  23. OXYCONTIN [Concomitant]
     Indication: ANALGESIC THERAPY
     Route: 048
     Dates: start: 20130725
  24. IBUPROFEN [Concomitant]
     Indication: PREMEDICATION
     Dosage: DOSE: 2.381 MG
     Route: 048
     Dates: start: 20130719
  25. RANITIDINE [Concomitant]
     Indication: PREMEDICATION
     Dosage: DOSE: 2.381
     Route: 042
     Dates: start: 20130726
  26. DEXAMETHASONE [Concomitant]
     Indication: PREMEDICATION
     Dosage: DOSE: 0.4286 MG
     Route: 042
     Dates: start: 20130726

REACTIONS (6)
  - Hypoxia [Unknown]
  - Febrile neutropenia [Not Recovered/Not Resolved]
  - Hypotension [Recovered/Resolved]
  - Cough [Unknown]
  - Dyspnoea [Unknown]
  - Atrial fibrillation [Unknown]
